FAERS Safety Report 18832340 (Version 1)
Quarter: 2021Q1

REPORT INFORMATION
  Report Type: Spontaneous
  Country: GB (occurrence: GB)
  Receive Date: 20210203
  Receipt Date: 20210203
  Transmission Date: 20210419
  Serious: Yes (Other)
  Sender: FDA-Public Use
  Company Number: GB-JAZZ-2021-GB-001266

PATIENT
  Age: 64 Year

DRUGS (2)
  1. VYXEOS [Suspect]
     Active Substance: CYTARABINE\DAUNORUBICIN
     Dosage: DAYS 1 AND 3 ONLY
  2. VYXEOS [Suspect]
     Active Substance: CYTARABINE\DAUNORUBICIN
     Indication: ACUTE MYELOID LEUKAEMIA
     Dosage: DAYS 1,3,5

REACTIONS (5)
  - Rash [Unknown]
  - Scrotal ulcer [Unknown]
  - Pyrexia [Unknown]
  - Deep vein thrombosis [Unknown]
  - Sepsis [Unknown]
